FAERS Safety Report 16921626 (Version 1)
Quarter: 2019Q4

REPORT INFORMATION
  Report Type: Spontaneous
  Country: US (occurrence: US)
  Receive Date: 20191015
  Receipt Date: 20191015
  Transmission Date: 20200122
  Serious: Yes (Death)
  Sender: FDA-Public Use
  Company Number: NVSC2019US001363

PATIENT
  Age: 65 Year
  Sex: Male

DRUGS (1)
  1. PREDNISONE. [Suspect]
     Active Substance: PREDNISONE
     Indication: MANTLE CELL LYMPHOMA
     Dosage: 60 MG, QD (FOR 10 DAYS)
     Route: 065

REACTIONS (2)
  - Mantle cell lymphoma [Fatal]
  - Malignant neoplasm progression [Fatal]
